FAERS Safety Report 25389691 (Version 1)
Quarter: 2025Q2

REPORT INFORMATION
  Report Type: Spontaneous
  Country: US (occurrence: None)
  Receive Date: 20250602
  Receipt Date: 20250602
  Transmission Date: 20250717
  Serious: Yes (Life-Threatening, Hospitalization)
  Sender: FDA-CTU
  Company Number: None

PATIENT
  Age: 68 Year
  Sex: Female
  Weight: 63 kg

DRUGS (6)
  1. ENTRESTO [Suspect]
     Active Substance: SACUBITRIL\VALSARTAN
     Indication: Cardiac failure
     Dosage: OTHER QUANTITY : 90 TABLET(S);?FREQUENCY : TWICE A DAY;?
     Route: 048
     Dates: start: 20250412, end: 20250430
  2. ELIQUIS [Concomitant]
     Active Substance: APIXABAN
  3. AMIODARONE [Concomitant]
     Active Substance: AMIODARONE
  4. MONTELUKAST [Concomitant]
     Active Substance: MONTELUKAST
  5. METOPROLOL [Concomitant]
     Active Substance: METOPROLOL
  6. ATORVASTATIN [Concomitant]
     Active Substance: ATORVASTATIN

REACTIONS (9)
  - Atrial fibrillation [None]
  - Renal failure [None]
  - Cough [None]
  - Nausea [None]
  - Fatigue [None]
  - Pain [None]
  - Abdominal pain upper [None]
  - Feeding disorder [None]
  - Oligodipsia [None]

NARRATIVE: CASE EVENT DATE: 20250412
